FAERS Safety Report 22309220 (Version 2)
Quarter: 2023Q2

REPORT INFORMATION
  Report Type: Spontaneous
  Country: GR (occurrence: GR)
  Receive Date: 20230511
  Receipt Date: 20230601
  Transmission Date: 20230721
  Serious: Yes (Hospitalization, Other)
  Sender: FDA-Public Use
  Company Number: GR-SANOFI-01540529

PATIENT
  Age: 82 Year
  Sex: Female

DRUGS (18)
  1. TAVOR (LORAZEPAM) [Suspect]
     Active Substance: LORAZEPAM
     Dosage: 3 DF, QD
     Dates: start: 2008
  2. PRIMPERAN [Suspect]
     Active Substance: METOCLOPRAMIDE HYDROCHLORIDE
     Indication: Constipation
     Dosage: UNK
  3. PRIMPERAN [Suspect]
     Active Substance: METOCLOPRAMIDE HYDROCHLORIDE
     Indication: Discomfort
  4. PRIMPERAN [Suspect]
     Active Substance: METOCLOPRAMIDE HYDROCHLORIDE
     Indication: Gastrointestinal pain
  5. PRIMPERAN [Suspect]
     Active Substance: METOCLOPRAMIDE HYDROCHLORIDE
     Indication: Pain
  6. PRIMPERAN [Suspect]
     Active Substance: METOCLOPRAMIDE HYDROCHLORIDE
     Indication: Constipation
     Dosage: FREQ:{TOTAL};5 MG, 1X
  7. PRIMPERAN [Suspect]
     Active Substance: METOCLOPRAMIDE HYDROCHLORIDE
     Indication: Discomfort
  8. PRIMPERAN [Suspect]
     Active Substance: METOCLOPRAMIDE HYDROCHLORIDE
     Indication: Gastrointestinal pain
  9. PRIMPERAN [Suspect]
     Active Substance: METOCLOPRAMIDE HYDROCHLORIDE
     Indication: Pain
  10. CORTISONE ACETATE [Suspect]
     Active Substance: CORTISONE ACETATE
     Dosage: UNK
  11. SIMVASTATIN [Suspect]
     Active Substance: SIMVASTATIN
     Dosage: 3 DF, 1X/DAY
  12. ACETAMINOPHEN [Suspect]
     Active Substance: ACETAMINOPHEN
     Dosage: UNK
  13. LIPITOR [Concomitant]
     Active Substance: ATORVASTATIN CALCIUM
     Dosage: UNK
  14. LOBEN [LOSARTAN POTASSIUM] [Concomitant]
     Dosage: UNK
  15. GLUCAGON [Concomitant]
     Active Substance: GLUCAGON
     Dosage: UNK
  16. NORVASC [Concomitant]
     Active Substance: AMLODIPINE BESYLATE
     Dosage: UNK
  17. IRBESARTAN [Concomitant]
     Active Substance: IRBESARTAN
     Dosage: 300 MG
  18. PLAVIX [Concomitant]
     Active Substance: CLOPIDOGREL BISULFATE
     Indication: Arterial disorder
     Dosage: 75 MG, QD
     Dates: start: 2020

REACTIONS (11)
  - Blood sodium decreased [Unknown]
  - Drug dependence [Unknown]
  - Presyncope [Unknown]
  - Blood pressure increased [Unknown]
  - Malaise [Unknown]
  - Angiopathy [Unknown]
  - Anxiety [Unknown]
  - Abdominal pain upper [Unknown]
  - Cough [Unknown]
  - Proctalgia [Unknown]
  - Spinal disorder [Unknown]

NARRATIVE: CASE EVENT DATE: 20200101
